FAERS Safety Report 25643086 (Version 4)
Quarter: 2025Q3

REPORT INFORMATION
  Report Type: Report from Study
  Country: JP (occurrence: JP)
  Receive Date: 20250805
  Receipt Date: 20250916
  Transmission Date: 20251021
  Serious: Yes (Hospitalization)
  Sender: ABBVIE
  Company Number: JP-ABBVIE-6397782

PATIENT
  Age: 46 Year
  Sex: Male
  Weight: 85.5 kg

DRUGS (16)
  1. RISANKIZUMAB [Suspect]
     Active Substance: RISANKIZUMAB
     Indication: Crohn^s disease
     Route: 058
     Dates: start: 20240625
  2. RISANKIZUMAB [Suspect]
     Active Substance: RISANKIZUMAB
     Indication: Crohn^s disease
     Route: 042
     Dates: start: 20240326, end: 20240521
  3. PENTASA [Concomitant]
     Active Substance: MESALAMINE
     Indication: Crohn^s disease
     Route: 048
     Dates: start: 20230530
  4. MIYA-BM [Concomitant]
     Active Substance: CLOSTRIDIUM BUTYRICUM SPORES STRAIN M-55
     Indication: Crohn^s disease
     Route: 048
     Dates: start: 20230530
  5. AMLODIPINE [Concomitant]
     Active Substance: AMLODIPINE BESYLATE
     Indication: Hypertension
     Route: 048
     Dates: start: 20230513, end: 20250720
  6. TELMISARTAN [Concomitant]
     Active Substance: TELMISARTAN
     Indication: Hypertension
     Route: 048
     Dates: start: 20230513, end: 20250720
  7. NEXIUM [Concomitant]
     Active Substance: ESOMEPRAZOLE MAGNESIUM
     Indication: Crohn^s disease
     Route: 048
     Dates: start: 20240312, end: 20250625
  8. LINOLOSAL OPHTHALMOLOGIV OTORHINOLOGIC SOLUTION [Concomitant]
     Indication: Uveitis
     Route: 031
     Dates: start: 20231120
  9. MYDRIN-P OPHTHALMIO SOLUTION [Concomitant]
     Indication: Uveitis
     Route: 031
     Dates: start: 20231120
  10. ACETAMINOPHEN [Concomitant]
     Active Substance: ACETAMINOPHEN
     Indication: Crohn^s disease
     Route: 048
     Dates: start: 20240423
  11. MINOCYCLINE HYDROCHLORIDE [Concomitant]
     Active Substance: MINOCYCLINE HYDROCHLORIDE
     Indication: Cellulitis
     Route: 048
     Dates: start: 20250708, end: 20250720
  12. FOSFOMYCIN CALCIUM [Concomitant]
     Active Substance: FOSFOMYCIN CALCIUM
     Indication: Cellulitis
     Route: 048
     Dates: start: 20250708, end: 20250720
  13. FOSFOMYCIN CALCIUM [Concomitant]
     Active Substance: FOSFOMYCIN CALCIUM
     Indication: Cellulitis
     Route: 048
     Dates: start: 20250725, end: 20250725
  14. FOSFOMYCIN CALCIUM [Concomitant]
     Active Substance: FOSFOMYCIN CALCIUM
     Indication: Cellulitis
     Route: 048
     Dates: start: 20250726, end: 20250726
  15. FOSFOMYCIN CALCIUM [Concomitant]
     Active Substance: FOSFOMYCIN CALCIUM
     Indication: Cellulitis
     Route: 048
     Dates: start: 20250727, end: 20250730
  16. FOSFOMYCIN CALCIUM [Concomitant]
     Active Substance: FOSFOMYCIN CALCIUM
     Indication: Cellulitis
     Route: 048
     Dates: start: 20250730, end: 20250731

REACTIONS (1)
  - Cholangitis [Recovered/Resolved]

NARRATIVE: CASE EVENT DATE: 20250721
